FAERS Safety Report 6421848-8 (Version None)
Quarter: 2009Q4

REPORT INFORMATION
  Report Type: 
  Country: None (occurrence: None)
  Receive Date: 20091029
  Receipt Date: 20091029
  Transmission Date: 20100525
  Serious: Yes (Life-Threatening)
  Sender: FDA-Public Use
  Company Number: None

PATIENT
  Age: 57 Year
  Sex: Male
  Weight: 111.1313 kg

DRUGS (2)
  1. ABILIFY [Suspect]
     Indication: BIPOLAR I DISORDER
     Dosage: 2MG DAILY PO
     Route: 048
     Dates: start: 20090910, end: 20091011
  2. ABILIFY [Suspect]
     Indication: DEPRESSION
     Dosage: 2MG DAILY PO
     Route: 048
     Dates: start: 20090910, end: 20091011

REACTIONS (4)
  - BIPOLAR DISORDER [None]
  - CONDITION AGGRAVATED [None]
  - GAMBLING [None]
  - INSOMNIA [None]
